FAERS Safety Report 24462148 (Version 1)
Quarter: 2024Q4

REPORT INFORMATION
  Report Type: Spontaneous
  Country: JP (occurrence: JP)
  Receive Date: 20241018
  Receipt Date: 20241018
  Transmission Date: 20250114
  Serious: No
  Sender: ROCHE
  Company Number: JP-ROCHE-3578632

PATIENT
  Age: 66 Year
  Sex: Male

DRUGS (5)
  1. RITUXAN [Suspect]
     Active Substance: RITUXIMAB
     Indication: Waldenstrom^s macroglobulinaemia
     Route: 041
  2. MOLNUPIRAVIR [Concomitant]
     Active Substance: MOLNUPIRAVIR
  3. PREDNISOLONE [Concomitant]
     Active Substance: PREDNISOLONE
  4. REMDESIVIR [Concomitant]
     Active Substance: REMDESIVIR
  5. ENSITRELVIR FUMARIC ACID [Concomitant]

REACTIONS (3)
  - COVID-19 pneumonia [Recovering/Resolving]
  - Off label use [Unknown]
  - COVID-19 [Unknown]
